FAERS Safety Report 8936175 (Version 3)
Quarter: 2014Q1

REPORT INFORMATION
  Report Type: Spontaneous
  Country: US (occurrence: US)
  Receive Date: 20121130
  Receipt Date: 20140121
  Transmission Date: 20141002
  Serious: Yes (Hospitalization, Other)
  Sender: FDA-Public Use
  Company Number: US-BIOGENIDEC-2012BI056169

PATIENT
  Age: 50 Year
  Sex: Female

DRUGS (2)
  1. TYSABRI [Suspect]
     Indication: MULTIPLE SCLEROSIS
     Route: 042
     Dates: start: 20090505
  2. TYSABRI [Suspect]
     Indication: MULTIPLE SCLEROSIS
     Route: 042
     Dates: end: 20131127

REACTIONS (5)
  - Cholecystitis infective [Recovered/Resolved]
  - Urinary tract infection [Recovered/Resolved with Sequelae]
  - Neurogenic bladder [Recovered/Resolved]
  - Device battery issue [Recovered/Resolved]
  - Dyspepsia [Unknown]
